FAERS Safety Report 24260390 (Version 2)
Quarter: 2024Q3

REPORT INFORMATION
  Report Type: Spontaneous
  Country: US (occurrence: US)
  Receive Date: 20240828
  Receipt Date: 20240924
  Transmission Date: 20241017
  Serious: No
  Sender: SUNOVION
  Company Number: US-SMPA-2024SPA000426AA

PATIENT

DRUGS (2)
  1. ORGOVYX [Suspect]
     Active Substance: RELUGOLIX
     Indication: Prostate cancer
     Dosage: 360 MG
     Route: 048
     Dates: start: 20240630, end: 20240630
  2. ORGOVYX [Suspect]
     Active Substance: RELUGOLIX
     Dosage: 120 MG, QD
     Route: 048
     Dates: start: 20240701

REACTIONS (6)
  - Chest discomfort [Unknown]
  - Fear [Unknown]
  - Anxiety [Unknown]
  - Limb injury [Unknown]
  - Abdominal discomfort [Unknown]
  - Insomnia [Unknown]
